FAERS Safety Report 5118881-5 (Version None)
Quarter: 2006Q3

REPORT INFORMATION
  Report Type: 
  Country: None (occurrence: None)
  Receive Date: 20060926
  Receipt Date: 20060912
  Transmission Date: 20061208
  Serious: Yes (Hospitalization, Other)
  Sender: FDA-Public Use
  Company Number: 2006BH011831

PATIENT
  Age: 4 Month
  Sex: Male
  Weight: 6.6 kg

DRUGS (5)
  1. GAMMAGARD LIQUID [Suspect]
     Indication: KAWASAKI'S DISEASE
     Dosage: IV
     Route: 042
     Dates: start: 20060305, end: 20060306
  2. GAMMAGARD LIQUID [Suspect]
     Indication: KAWASAKI'S DISEASE
     Dosage: IV
     Route: 042
     Dates: start: 20060328, end: 20060328
  3. IVEEGAM [Suspect]
     Indication: KAWASAKI'S DISEASE
     Dosage: IV
     Route: 042
     Dates: start: 20060307, end: 20060307
  4. REMICADE [Concomitant]
  5. ASPIRIN [Concomitant]

REACTIONS (2)
  - NO THERAPEUTIC RESPONSE [None]
  - PYREXIA [None]
